FAERS Safety Report 4843452-5 (Version None)
Quarter: 2005Q4

REPORT INFORMATION
  Report Type: 
  Country: None (occurrence: None)
  Receive Date: 20051027
  Receipt Date: 20050519
  Transmission Date: 20060501
  Serious: Yes (Hospitalization)
  Sender: FDA-Public Use
  Company Number: HQWYE913424MAY05

PATIENT
  Age: 63 Year
  Sex: Female
  Weight: 62.2 kg

DRUGS (2)
  1. PREMARIN [Suspect]
     Indication: MENOPAUSAL SYMPTOMS
     Dosage: ORAL
     Route: 048
     Dates: start: 19930101, end: 19930101
  2. PROVERA [Suspect]
     Indication: MENOPAUSAL SYMPTOMS
     Dosage: ORAL
     Route: 048
     Dates: start: 19930101, end: 19940101

REACTIONS (3)
  - DEEP VEIN THROMBOSIS [None]
  - PHLEBITIS [None]
  - THROMBOSIS [None]
